FAERS Safety Report 9421970 (Version 1)
Quarter: 2013Q3

REPORT INFORMATION
  Report Type: Spontaneous
  Country: US (occurrence: None)
  Receive Date: 20130725
  Receipt Date: 20130725
  Transmission Date: 20140515
  Serious: Yes (Life-Threatening)
  Sender: FDA-Public Use
  Company Number: None

PATIENT
  Age: 60 Year
  Sex: Male
  Weight: 99.79 kg

DRUGS (4)
  1. QUINAPRIL [Suspect]
     Indication: HYPERTENSION
     Dosage: 30 PILLS 1 DAILY MOUTH
     Route: 048
     Dates: start: 20110221, end: 20110223
  2. METFORMIN [Concomitant]
  3. QUINAPRIL [Concomitant]
  4. METFORMIN [Concomitant]
     Dates: start: 20110221, end: 20110223

REACTIONS (2)
  - Blood pressure increased [None]
  - Product quality issue [None]
